FAERS Safety Report 16741031 (Version 1)
Quarter: 2019Q3

REPORT INFORMATION
  Report Type: Report from Study
  Country: US (occurrence: US)
  Receive Date: 20190826
  Receipt Date: 20190826
  Transmission Date: 20191005
  Serious: No
  Sender: FDA-Public Use
  Company Number: PHEH2019US035011

PATIENT
  Sex: Female

DRUGS (2)
  1. LATANOPROST. [Suspect]
     Active Substance: LATANOPROST
     Indication: PRODUCT USED FOR UNKNOWN INDICATION
     Dosage: UNK
     Route: 065
     Dates: start: 20190610
  2. LATANOPROST. [Suspect]
     Active Substance: LATANOPROST
     Dosage: UNK
     Route: 065
     Dates: start: 20190815

REACTIONS (1)
  - Drug ineffective [Unknown]
